FAERS Safety Report 17929668 (Version 2)
Quarter: 2020Q4

REPORT INFORMATION
  Report Type: Spontaneous
  Country: US (occurrence: US)
  Receive Date: 20200623
  Receipt Date: 20201116
  Transmission Date: 20210113
  Serious: No
  Sender: FDA-Public Use
  Company Number: US-PFIZER INC-2020240726

PATIENT
  Age: 58 Year
  Sex: Female
  Weight: 58.97 kg

DRUGS (9)
  1. ENTRESTO [Concomitant]
     Active Substance: SACUBITRIL\VALSARTAN
     Indication: CARDIAC FAILURE CONGESTIVE
     Dosage: 24 MG, 2X/DAY
     Route: 048
  2. BACLOFEN. [Concomitant]
     Active Substance: BACLOFEN
     Indication: SLEEP DISORDER
     Dosage: 20 MG
  3. TRAZODONE [Concomitant]
     Active Substance: TRAZODONE HYDROCHLORIDE
     Indication: PAIN
     Dosage: 100 MG, 1X/DAY(1 TABLET AT NIGHT)
  4. GABAPENTIN. [Suspect]
     Active Substance: GABAPENTIN
     Dosage: UNK
  5. ENTRESTO [Concomitant]
     Active Substance: SACUBITRIL\VALSARTAN
     Dosage: 26 MG, 2X/DAY
     Route: 048
  6. METFORMIN [Concomitant]
     Active Substance: METFORMIN HYDROCHLORIDE
     Indication: TYPE 1 DIABETES MELLITUS
     Dosage: 500 MG, 3X/DAY(ONE IN THE MORNING AND 2 AT THE NIGHT)
     Route: 048
  7. BUMETANIDE. [Concomitant]
     Active Substance: BUMETANIDE
     Indication: CARDIAC FAILURE CONGESTIVE
     Dosage: 0.5 MG, DAILY ( EVERY DAY)
  8. TRESIBA [Concomitant]
     Active Substance: INSULIN DEGLUDEC
     Indication: TYPE 1 DIABETES MELLITUS
  9. CARVEDILOL. [Concomitant]
     Active Substance: CARVEDILOL
     Indication: CARDIAC FAILURE CONGESTIVE
     Dosage: 25 MG, 2X/DAY
     Route: 048

REACTIONS (7)
  - Tremor [Unknown]
  - Drug hypersensitivity [Unknown]
  - Aggression [Unknown]
  - Pain [Unknown]
  - Confusional state [Unknown]
  - Muscle tightness [Unknown]
  - Gait disturbance [Unknown]
